FAERS Safety Report 16890371 (Version 1)
Quarter: 2019Q4

REPORT INFORMATION
  Report Type: Spontaneous
  Country: US (occurrence: US)
  Receive Date: 20190812
  Receipt Date: 20190812
  Transmission Date: 20200122
  Serious: No
  Sender: FDA-Public Use
  Company Number: None

PATIENT
  Age: 17 Year
  Sex: Female
  Weight: 38.56 kg

DRUGS (1)
  1. DEXAMETHASONE. [Suspect]
     Active Substance: DEXAMETHASONE
     Indication: NONINFECTIVE ENCEPHALITIS
     Dosage: ?          QUANTITY:3 MG MILLIGRAM(S);?
     Route: 048
     Dates: start: 20190325, end: 20190423

REACTIONS (5)
  - Hallucination [None]
  - Confusional state [None]
  - Amnesia [None]
  - Psychotic disorder [None]
  - Fear [None]

NARRATIVE: CASE EVENT DATE: 20190401
